FAERS Safety Report 6189507-7 (Version None)
Quarter: 2009Q2

REPORT INFORMATION
  Report Type: 
  Country: None (occurrence: None)
  Receive Date: 20090514
  Receipt Date: 20090504
  Transmission Date: 20091009
  Serious: Yes (Death, Hospitalization)
  Sender: FDA-Public Use
  Company Number: BE-PFIZER INC-2009198317

PATIENT
  Age: 84 Year

DRUGS (7)
  1. SUNITINIB MALATE [Suspect]
     Indication: PANCREATIC NEUROENDOCRINE TUMOUR
     Dosage: 12.5 MG, 3X/DAY
     Route: 048
     Dates: start: 20090311, end: 20090406
  2. NOVONORM [Concomitant]
     Dosage: UNK
     Route: 048
  3. DURAGESIC-100 [Concomitant]
     Dosage: UNK
     Route: 062
  4. PANTOZOL [Concomitant]
     Dosage: UNK
     Route: 048
  5. LITICAN [Concomitant]
     Dosage: UNK
     Route: 048
  6. PILOCARPINE HYDROCHLORIDE [Concomitant]
     Dosage: UNK
     Route: 061
  7. SANDOSTATIN [Concomitant]
     Dosage: UNK
     Route: 030

REACTIONS (2)
  - GENERAL PHYSICAL HEALTH DETERIORATION [None]
  - METABOLIC ENCEPHALOPATHY [None]
